FAERS Safety Report 6492577-X (Version None)
Quarter: 2009Q4

REPORT INFORMATION
  Report Type: 
  Country: None (occurrence: None)
  Receive Date: 20091208
  Receipt Date: 20091207
  Transmission Date: 20100525
  Serious: Yes (Other)
  Sender: FDA-Public Use
  Company Number: GRT 2009-13894

PATIENT
  Age: 58 Year
  Sex: Female
  Weight: 79 kg

DRUGS (2)
  1. LIDOCAINE HCL [Suspect]
     Indication: OSTEOMYELITIS
     Dates: start: 20090201, end: 20090507
  2. LIDOCAINE HCL [Suspect]
     Indication: PAIN
     Dates: start: 20090201, end: 20090507

REACTIONS (3)
  - FEELING ABNORMAL [None]
  - FEELING COLD [None]
  - FEELING HOT [None]
